FAERS Safety Report 5576713-5 (Version None)
Quarter: 2007Q4

REPORT INFORMATION
  Report Type: 
  Country: None (occurrence: None)
  Receive Date: 20071228
  Receipt Date: 20071217
  Transmission Date: 20080405
  Serious: Yes (Other)
  Sender: FDA-Public Use
  Company Number: US-AMGEN-QUU256011

PATIENT
  Sex: Male
  Weight: 81.3 kg

DRUGS (8)
  1. NEULASTA [Suspect]
     Indication: CHEMOTHERAPY
     Route: 058
     Dates: start: 20071019, end: 20071116
  2. ADRIAMYCIN PFS [Concomitant]
     Dates: start: 20070814
  3. BLEOMYCIN [Concomitant]
     Dates: start: 20070814
  4. VINBLASTINE SULFATE [Concomitant]
     Dates: start: 20070814
  5. ACYCLOVIR [Concomitant]
     Dates: start: 20050801
  6. DTIC-DOME [Concomitant]
     Dates: start: 20070814
  7. ALBUTEROL [Concomitant]
  8. NEUPOGEN [Concomitant]
     Route: 065
     Dates: start: 20070831

REACTIONS (1)
  - LYMPHADENOPATHY [None]
